FAERS Safety Report 25934753 (Version 1)
Quarter: 2025Q4

REPORT INFORMATION
  Report Type: Spontaneous
  Country: MX (occurrence: MX)
  Receive Date: 20251017
  Receipt Date: 20251017
  Transmission Date: 20260117
  Serious: Yes (Death)
  Sender: RANBAXY
  Company Number: MX-SUN PHARMACEUTICAL INDUSTRIES INC-2025R1-532203

PATIENT
  Age: 47 Year
  Sex: Female

DRUGS (2)
  1. NOREPINEPHRINE BITARTRATE [Suspect]
     Active Substance: NOREPINEPHRINE BITARTRATE
     Indication: Endocarditis
     Dosage: UNK
     Route: 065
  2. LINEZOLID [Concomitant]
     Active Substance: LINEZOLID
     Indication: Antibiotic therapy
     Dosage: 600 MILLIGRAM, BID
     Route: 042

REACTIONS (1)
  - Condition aggravated [Fatal]
